FAERS Safety Report 9665725 (Version 1)
Quarter: 2013Q4

REPORT INFORMATION
  Report Type: Report from Study
  Country: AU (occurrence: AU)
  Receive Date: 20131104
  Receipt Date: 20131104
  Transmission Date: 20140711
  Serious: Yes (Other)
  Sender: FDA-Public Use
  Company Number: PHHY2013AU123900

PATIENT
  Age: 65 Year
  Sex: Female

DRUGS (1)
  1. ACLASTA [Suspect]
     Dosage: 5 MG, UNK
     Route: 042
     Dates: start: 20121004

REACTIONS (4)
  - Fall [Recovering/Resolving]
  - Clavicle fracture [Recovering/Resolving]
  - IVth nerve injury [Recovering/Resolving]
  - Visual impairment [Recovering/Resolving]
